FAERS Safety Report 17206258 (Version 1)
Quarter: 2019Q4

REPORT INFORMATION
  Report Type: Spontaneous
  Country: JP (occurrence: JP)
  Receive Date: 20191227
  Receipt Date: 20191227
  Transmission Date: 20200122
  Serious: Yes (Life-Threatening, Other)
  Sender: FDA-Public Use
  Company Number: JP-ASTRAZENECA-2019SF88049

PATIENT
  Age: 75 Year
  Sex: Female

DRUGS (8)
  1. BIPRESSO (QUETIAPINE FUMARATE) [Suspect]
     Active Substance: QUETIAPINE FUMARATE
     Indication: DEPRESSION
     Route: 048
     Dates: start: 20191031
  2. ARTANE [Concomitant]
     Active Substance: TRIHEXYPHENIDYL HYDROCHLORIDE
     Dosage: PER ORAL NOS, 2
  3. VITAMIN D3 [Suspect]
     Active Substance: CHOLECALCIFEROL
     Indication: INSOMNIA
     Dosage: PER ORAL NOS- 15-45 MG/DAY
     Route: 048
     Dates: start: 20190909
  4. TETRAMIDE [Concomitant]
     Active Substance: MIANSERIN
     Dosage: 30.0MG UNKNOWN
     Dates: start: 199211
  5. LEXOTAN [Concomitant]
     Active Substance: BROMAZEPAM
     Dosage: 2.0MG UNKNOWN
     Dates: start: 199211
  6. SULPIRIDE [Concomitant]
     Active Substance: SULPIRIDE
     Dates: start: 199211
  7. VITAMIN D3 [Suspect]
     Active Substance: CHOLECALCIFEROL
     Indication: DECREASED APPETITE
     Dosage: PER ORAL NOS- 15-45 MG/DAY
     Route: 048
     Dates: start: 20190909
  8. VITAMIN D3 [Suspect]
     Active Substance: CHOLECALCIFEROL
     Indication: DEPRESSED MOOD
     Dosage: PER ORAL NOS- 15-45 MG/DAY
     Route: 048
     Dates: start: 20190909

REACTIONS (2)
  - Pneumonia aspiration [Not Recovered/Not Resolved]
  - Suicide attempt [Recovered/Resolved]

NARRATIVE: CASE EVENT DATE: 20191114
